FAERS Safety Report 8783049 (Version 1)
Quarter: 2012Q4

REPORT INFORMATION
  Report Type: Report from Study
  Country: US (occurrence: US)
  Receive Date: 20120913
  Receipt Date: 20120913
  Transmission Date: 20130627
  Serious: No
  Sender: FDA-Public Use
  Company Number: US-VERTEX PHARMACEUTICAL INC.-AE-2012-009560

PATIENT
  Sex: Male
  Weight: 79.4 kg

DRUGS (3)
  1. INCIVEK [Suspect]
     Indication: HEPATITIS C
     Route: 048
     Dates: start: 20120504
  2. RIBASPHERE [Concomitant]
     Indication: HEPATITIS C
     Route: 048
     Dates: start: 20120504
  3. PEGASYS [Concomitant]
     Indication: HEPATITIS C
     Dates: start: 20120504

REACTIONS (5)
  - Hypertension [Unknown]
  - Blood triglycerides increased [Unknown]
  - Fatigue [Unknown]
  - Anaemia [Unknown]
  - Anal pruritus [Recovered/Resolved]
